FAERS Safety Report 5613714-2 (Version None)
Quarter: 2008Q1

REPORT INFORMATION
  Report Type: 
  Country: None (occurrence: None)
  Receive Date: 20080130
  Receipt Date: 20080116
  Transmission Date: 20080703
  Serious: Yes (Hospitalization, Other)
  Sender: FDA-Public Use
  Company Number: 79948

PATIENT
  Age: 69 Year
  Sex: Male

DRUGS (11)
  1. ALVESCO [Suspect]
     Indication: ASTHMA
     Dosage: 1/DAY 160 UG; INHALATION
     Route: 055
     Dates: start: 20060504
  2. ALBUTEROL [Concomitant]
  3. SPIRONOLACTONE [Concomitant]
  4. ATROVENT [Concomitant]
  5. DIOVAN [Concomitant]
  6. ASCAL (ACETYLSALICYLATE CALCIUM_ [Concomitant]
  7. SELOKEEN ZOC (METROPOLOL SUCCINATE) [Concomitant]
  8. BUMETANIDE (BUMATANIDE) [Concomitant]
  9. METFORMIN HCL [Concomitant]
  10. PREDNISOLONE [Concomitant]
  11. AVELOX [Concomitant]

REACTIONS (1)
  - CHEST PAIN [None]
